FAERS Safety Report 14783049 (Version 1)
Quarter: 2018Q2

REPORT INFORMATION
  Report Type: Spontaneous
  Country: JP (occurrence: JP)
  Receive Date: 20180420
  Receipt Date: 20180420
  Transmission Date: 20180711
  Serious: Yes (Hospitalization, Other)
  Sender: FDA-Public Use
  Company Number: PHJP2018JP008479

PATIENT
  Age: 68 Year
  Sex: Female
  Weight: 49.4 kg

DRUGS (2)
  1. VOTRIENT [Suspect]
     Active Substance: PAZOPANIB HYDROCHLORIDE
     Dosage: 600 MG, UNK
     Route: 048
  2. VOTRIENT [Suspect]
     Active Substance: PAZOPANIB HYDROCHLORIDE
     Indication: RENAL CANCER METASTATIC
     Dosage: 800 MG, UNK
     Route: 048
     Dates: start: 201711

REACTIONS (12)
  - Face oedema [Recovered/Resolved]
  - Pericardial effusion [Unknown]
  - Proteinuria [Recovering/Resolving]
  - Cardiac failure [Unknown]
  - Malignant neoplasm progression [Unknown]
  - Generalised oedema [Unknown]
  - Dyspnoea [Unknown]
  - Metastases to spine [Unknown]
  - Blood pressure increased [Recovered/Resolved]
  - Hypoproteinaemia [Unknown]
  - Nausea [Unknown]
  - Intra-abdominal fluid collection [Unknown]

NARRATIVE: CASE EVENT DATE: 201712
